FAERS Safety Report 6070591-6 (Version None)
Quarter: 2009Q1

REPORT INFORMATION
  Report Type: 
  Country: None (occurrence: None)
  Receive Date: 20090209
  Receipt Date: 20090129
  Transmission Date: 20090719
  Serious: Yes (Other)
  Sender: FDA-Public Use
  Company Number: JP-PFIZER INC-2009163861

PATIENT

DRUGS (3)
  1. SELARA [Suspect]
     Dosage: 25 MG, 1X/DAY
     Dates: start: 20090116
  2. DRUG, UNSPECIFIED [Concomitant]
  3. ALDACTONE [Concomitant]
     Route: 048
     Dates: end: 20090115

REACTIONS (1)
  - EYELID OEDEMA [None]
